FAERS Safety Report 10355665 (Version 4)
Quarter: 2014Q4

REPORT INFORMATION
  Report Type: Spontaneous
  Country: IT (occurrence: IT)
  Receive Date: 20140731
  Receipt Date: 20141127
  Transmission Date: 20150528
  Serious: Yes (Hospitalization)
  Sender: FDA-Public Use
  Company Number: IT-MERCK-1407ITA013715

PATIENT
  Age: 57 Year
  Sex: Male
  Weight: 70 kg

DRUGS (8)
  1. METFORMIN [Concomitant]
     Active Substance: METFORMIN HYDROCHLORIDE
     Dosage: 1000 MG TWICE
     Route: 048
  2. LEVETIRACETAM. [Concomitant]
     Active Substance: LEVETIRACETAM
     Dosage: 1 TABLET TWICE
  3. APIDRA [Concomitant]
     Active Substance: INSULIN GLULISINE
     Dosage: 12+12 U
  4. TEMODAL [Suspect]
     Active Substance: TEMOZOLOMIDE
     Indication: ASTROCYTOMA
     Dosage: 200 MG, CYCLICAL
     Route: 048
     Dates: start: 20140704, end: 20140709
  5. ANTRA (OMEPRAZOLE) [Concomitant]
     Active Substance: OMEPRAZOLE
     Dosage: 20 MG 1 CAPSULE
  6. CARDIOASPIRIN [Concomitant]
     Active Substance: ASPIRIN
     Dosage: 1 TABLET
  7. SOLDESAM [Concomitant]
     Active Substance: DEXAMETHASONE
     Dosage: 25 DROPS (DOSAGE TO SCALE)
  8. LANTUS [Concomitant]
     Active Substance: INSULIN GLARGINE
     Dosage: 16 U IN THE EVENING

REACTIONS (4)
  - Confusional state [Not Recovered/Not Resolved]
  - Vertigo [Not Recovered/Not Resolved]
  - Asthenia [Not Recovered/Not Resolved]
  - Paraesthesia [Not Recovered/Not Resolved]

NARRATIVE: CASE EVENT DATE: 20140707
